FAERS Safety Report 14783275 (Version 2)
Quarter: 2018Q2

REPORT INFORMATION
  Report Type: Spontaneous
  Country: PT (occurrence: PT)
  Receive Date: 20180420
  Receipt Date: 20180507
  Transmission Date: 20180711
  Serious: Yes (Life-Threatening)
  Sender: FDA-Public Use
  Company Number: PT-AUROBINDO-AUR-APL-2018-020819

PATIENT
  Age: 77 Year
  Sex: Male
  Weight: 70 kg

DRUGS (9)
  1. CARVEDILOL. [Concomitant]
     Active Substance: CARVEDILOL
     Indication: ACUTE CORONARY SYNDROME
     Dosage: 6.25 MILLIGRAM, ONCE A DAY
     Route: 048
     Dates: start: 20140220
  2. ESPIRONOLACTONA [Concomitant]
     Active Substance: SPIRONOLACTONE
     Indication: ACUTE CORONARY SYNDROME
     Dosage: 25 MILLIGRAM, ONCE A DAY
     Route: 048
     Dates: start: 20140219
  3. TANSULOSINA [Concomitant]
     Indication: PRODUCT USED FOR UNKNOWN INDICATION
     Dosage: UTILIZADO EM CONTEXTO HOSPITALAR
     Route: 048
     Dates: start: 20140225, end: 20140303
  4. CAPTOPRIL. [Concomitant]
     Active Substance: CAPTOPRIL
     Indication: ACUTE CORONARY SYNDROME
     Dosage: 6.25 MILLIGRAM, ONCE A DAY
     Route: 048
     Dates: start: 20140217
  5. FUROSEMIDA                         /00032601/ [Concomitant]
     Active Substance: FUROSEMIDE
     Indication: ACUTE CORONARY SYNDROME
     Dosage: 40 MILLIGRAM, ONCE A DAY
     Route: 048
     Dates: start: 20140217
  6. AMIODARONE [Suspect]
     Active Substance: AMIODARONE
     Indication: ACUTE CORONARY SYNDROME
     Dosage: 200 MILLIGRAM, ONCE A DAY, EM DIAS ALTERNADOS
     Route: 048
     Dates: start: 20140225
  7. PRAVASTATINA                       /00880401/ [Concomitant]
     Indication: DYSLIPIDAEMIA
     Dosage: 40 MILLIGRAM, ONCE A DAY
     Route: 048
     Dates: start: 20140217
  8. PRADAXA [Suspect]
     Active Substance: DABIGATRAN ETEXILATE MESYLATE
     Indication: ACUTE CORONARY SYNDROME
     Dosage: 110 MILLIGRAM, ONCE A DAY
     Route: 048
     Dates: start: 20140303, end: 20140416
  9. LEVOTHYROXINE SODIUM. [Concomitant]
     Active Substance: LEVOTHYROXINE SODIUM
     Indication: HYPOTHYROIDISM
     Dosage: UNK
     Route: 048

REACTIONS (6)
  - Rectal haemorrhage [Recovered/Resolved]
  - Hypotension [Recovering/Resolving]
  - Anaemia [Recovering/Resolving]
  - Epistaxis [Recovered/Resolved]
  - Haematuria [Recovered/Resolved]
  - Haematochezia [Recovering/Resolving]

NARRATIVE: CASE EVENT DATE: 20140416
